FAERS Safety Report 7966491-4 (Version None)
Quarter: 2011Q4

REPORT INFORMATION
  Report Type: 
  Country: None (occurrence: None)
  Receive Date: 20111208
  Receipt Date: 20111129
  Transmission Date: 20120403
  Serious: Yes (Death, Hospitalization, Other)
  Sender: FDA-Public Use
  Company Number: DE-ROCHE-GNE324636

PATIENT
  Age: 53 Year
  Sex: Female
  Weight: 65 kg

DRUGS (10)
  1. CARBOPLATIN [Suspect]
     Indication: METASTASES TO LYMPH NODES
  2. FONDAPARINUX SODIUM [Suspect]
     Dosage: 5 MG, QD
  3. ALTEPLASE [Suspect]
     Indication: PULMONARY EMBOLISM
     Dosage: 50 MG, UNK
     Route: 065
  4. DABIGATRAN ETEXILATE [Suspect]
     Indication: TROUSSEAU'S SYNDROME
     Route: 048
  5. CARBOPLATIN [Suspect]
     Indication: METASTATIC NEOPLASM
  6. FONDAPARINUX SODIUM [Suspect]
     Indication: TROUSSEAU'S SYNDROME
     Dosage: 7.5 MG, QD
  7. PACLITAXEL [Suspect]
     Indication: METASTASES TO LYMPH NODES
  8. FONDAPARINUX SODIUM [Suspect]
     Dosage: 2.5 MG, QD
  9. ARGATROBAN [Suspect]
     Indication: PULMONARY EMBOLISM
     Dosage: UNK
     Route: 042
  10. PACLITAXEL [Suspect]
     Indication: METASTATIC NEOPLASM

REACTIONS (7)
  - MYOCARDIAL STRAIN [None]
  - PNEUMONIA [None]
  - ADENOCARCINOMA [None]
  - NEUTROPENIC INFECTION [None]
  - HAEMOPTYSIS [None]
  - PULMONARY EMBOLISM [None]
  - PERICARDIAL EFFUSION [None]
